FAERS Safety Report 8890441 (Version 2)
Quarter: 2013Q1

REPORT INFORMATION
  Report Type: Spontaneous
  Country: FI (occurrence: FI)
  Receive Date: 20121107
  Receipt Date: 20130121
  Transmission Date: 20140127
  Serious: Yes (Other)
  Sender: FDA-Public Use
  Company Number: PHHY2012FI101020

PATIENT
  Age: 24 Year
  Sex: Male

DRUGS (4)
  1. LEPONEX [Suspect]
     Dosage: 550 MG, DAILY
     Route: 048
  2. LITO [Concomitant]
  3. ZELDOX [Concomitant]
  4. BISOPROLOL [Concomitant]
     Dosage: 5 MG, BID

REACTIONS (6)
  - Loss of consciousness [Unknown]
  - Troponin T increased [Unknown]
  - Electrocardiogram T wave inversion [Unknown]
  - Hepatic enzyme increased [Unknown]
  - Abdominal discomfort [Unknown]
  - Vomiting [Unknown]
